FAERS Safety Report 8622387 (Version 3)
Quarter: 2013Q4

REPORT INFORMATION
  Report Type: Spontaneous
  Country: JP (occurrence: JP)
  Receive Date: 20120619
  Receipt Date: 20131105
  Transmission Date: 20140711
  Serious: Yes (Death)
  Sender: FDA-Public Use
  Company Number: JP-009507513-1206USA02718

PATIENT
  Age: 77 Year
  Sex: Female
  Weight: 36 kg

DRUGS (9)
  1. JANUVIA [Suspect]
     Indication: DIABETES MELLITUS
     Dosage: 25 MG, QD
     Route: 048
     Dates: start: 20091224
  2. JANUVIA [Suspect]
     Indication: DIABETES MELLITUS
  3. OLMETEC [Concomitant]
     Indication: HYPERTENSION
     Dosage: 10 MG, QD
     Route: 048
     Dates: start: 20091224
  4. AMARYL [Concomitant]
     Indication: DIABETES MELLITUS
     Dosage: 1 MG, QD
     Route: 048
  5. MAGMITT [Concomitant]
     Dosage: 330 MG, UNK
     Route: 048
  6. NELBIS [Concomitant]
     Indication: DIABETES MELLITUS
     Dosage: 250 MG, UNK
     Route: 048
     Dates: start: 20091224
  7. FORSENID [Concomitant]
     Dosage: 12 MG, UNK
     Route: 048
  8. GLIMEPIRIDE [Concomitant]
     Indication: DIABETES MELLITUS
     Dosage: 0.5 MG, QD
     Dates: start: 20091224
  9. LIVALO [Concomitant]
     Indication: HYPERCHOLESTEROLAEMIA
     Dosage: 1 MG, QD
     Dates: start: 20091224

REACTIONS (1)
  - Death [Fatal]
